FAERS Safety Report 18740449 (Version 1)
Quarter: 2021Q1

REPORT INFORMATION
  Report Type: Spontaneous
  Country: US (occurrence: US)
  Receive Date: 20210114
  Receipt Date: 20210114
  Transmission Date: 20210419
  Serious: Yes (Death)
  Sender: FDA-Public Use
  Company Number: None

PATIENT
  Sex: Female

DRUGS (18)
  1. GAMMAGARD [Concomitant]
     Active Substance: HUMAN IMMUNOGLOBULIN G
  2. MAGNESIUM [Concomitant]
     Active Substance: MAGNESIUM
  3. MUCINEX [Concomitant]
     Active Substance: GUAIFENESIN
  4. ALLOPURINOL. [Concomitant]
     Active Substance: ALLOPURINOL
  5. ATORVASTATIN [Concomitant]
     Active Substance: ATORVASTATIN
  6. ASPIRIN. [Concomitant]
     Active Substance: ASPIRIN
  7. IRON [Concomitant]
     Active Substance: IRON
  8. NAMENDA [Concomitant]
     Active Substance: MEMANTINE HYDROCHLORIDE
  9. MONTELUKAST [Concomitant]
     Active Substance: MONTELUKAST SODIUM
  10. OMEGA 3 KRILL [Concomitant]
  11. LIOTHYRONINE [Concomitant]
     Active Substance: LIOTHYRONINE
  12. PROBIOTIC [Concomitant]
     Active Substance: PROBIOTICS NOS
  13. SUPER ENZYME [Concomitant]
  14. DONEPEZIL. [Concomitant]
     Active Substance: DONEPEZIL
  15. ESTRADIOL. [Concomitant]
     Active Substance: ESTRADIOL
  16. GILENYA [Suspect]
     Active Substance: FINGOLIMOD HYDROCHLORIDE
     Indication: MULTIPLE SCLEROSIS
     Route: 048
     Dates: start: 20180425
  17. CALCIUM FOR CHEW WOMEN [Concomitant]
  18. VITAMIN D3 [Concomitant]
     Active Substance: CHOLECALCIFEROL

REACTIONS (1)
  - Death [None]
